FAERS Safety Report 4641634-9 (Version None)
Quarter: 2005Q2

REPORT INFORMATION
  Report Type: 
  Country: None (occurrence: None)
  Receive Date: 20050420
  Receipt Date: 20050406
  Transmission Date: 20051028
  Serious: Yes (Other)
  Sender: FDA-Public Use
  Company Number: WAES 0504USA01314

PATIENT
  Age: 72 Year
  Sex: Male

DRUGS (6)
  1. FOSAMAX [Suspect]
     Indication: OSTEOPOROSIS
     Dosage: 5 MG DAILY PO
     Route: 048
     Dates: start: 20040114, end: 20041015
  2. ALFAROL [Concomitant]
  3. DECADRON [Concomitant]
  4. PREDNISOLONE [Concomitant]
  5. SOLU-MEDROL [Concomitant]
  6. THYRADIN-S [Concomitant]

REACTIONS (7)
  - COUGH [None]
  - DEAFNESS [None]
  - OTITIS MEDIA [None]
  - PYREXIA [None]
  - RESPIRATORY TRACT INFECTION [None]
  - STRIDOR [None]
  - THROMBOCYTOPENIA [None]
